FAERS Safety Report 9638078 (Version 1)
Quarter: 2013Q4

REPORT INFORMATION
  Report Type: Spontaneous
  Country: US (occurrence: US)
  Receive Date: 20131022
  Receipt Date: 20131022
  Transmission Date: 20140711
  Serious: No
  Sender: FDA-Public Use
  Company Number: US-PFIZER INC-2013300417

PATIENT
  Age: 82 Year
  Sex: Female
  Weight: 50.79 kg

DRUGS (9)
  1. ZYVOX [Suspect]
     Indication: INFECTION
     Dosage: 600 MG, 2X/DAY
     Route: 048
     Dates: start: 20131012, end: 20131013
  2. LEVOTHYROXINE SODIUM [Interacting]
     Indication: THYROID DISORDER
     Dosage: UNK, 1X/DAY
  3. LISINOPRIL [Interacting]
     Indication: CARDIAC DISORDER
     Dosage: UNK, 1X/DAY
  4. DIGOXIN [Interacting]
     Indication: CARDIAC DISORDER
     Dosage: UNK, 1X/DAY
  5. COUMADIN [Interacting]
     Indication: ANTICOAGULANT THERAPY
     Dosage: UNK, 1X/DAY
  6. COUMADIN [Interacting]
     Indication: POSTOPERATIVE CARE
  7. LASIX [Interacting]
     Indication: PROPHYLAXIS
     Dosage: UNK, 1X/DAY
  8. COREG [Interacting]
     Indication: CARDIAC DISORDER
     Dosage: UNK, 1X/DAY
  9. OMEGA 3 [Concomitant]
     Dosage: UNK

REACTIONS (5)
  - Insomnia [Unknown]
  - Hypersensitivity [Unknown]
  - Urticaria [Unknown]
  - Pruritus generalised [Unknown]
  - Drug interaction [Unknown]
